FAERS Safety Report 20155058 (Version 3)
Quarter: 2022Q2

REPORT INFORMATION
  Report Type: Spontaneous
  Country: US (occurrence: US)
  Receive Date: 20211207
  Receipt Date: 20220511
  Transmission Date: 20220721
  Serious: Yes (Other)
  Sender: FDA-Public Use
  Company Number: US-GILEAD-2021-0557282

PATIENT
  Age: 36 Year
  Sex: Male
  Weight: 185.52 kg

DRUGS (24)
  1. TRUVADA [Suspect]
     Active Substance: EMTRICITABINE\TENOFOVIR DISOPROXIL FUMARATE
     Indication: Prophylaxis against HIV infection
     Dosage: UNK
     Route: 048
     Dates: start: 2015
  2. TRUVADA [Suspect]
     Active Substance: EMTRICITABINE\TENOFOVIR DISOPROXIL FUMARATE
     Dosage: UNK
     Route: 048
     Dates: start: 201704
  3. TRUVADA [Suspect]
     Active Substance: EMTRICITABINE\TENOFOVIR DISOPROXIL FUMARATE
     Dosage: UNK
     Route: 048
     Dates: start: 2007, end: 2013
  4. ALLOPURINOL [Concomitant]
     Active Substance: ALLOPURINOL
  5. AMITRIPTYLINE [Concomitant]
     Active Substance: AMITRIPTYLINE
  6. AMLODIPINE\VALSARTAN [Concomitant]
     Active Substance: AMLODIPINE\VALSARTAN
  7. ATORVASTATIN [Concomitant]
     Active Substance: ATORVASTATIN
  8. BUPROPION [Concomitant]
     Active Substance: BUPROPION
  9. BUSPIRONE HCL [Concomitant]
     Active Substance: BUSPIRONE HYDROCHLORIDE
  10. CARVEDILOL [Concomitant]
     Active Substance: CARVEDILOL
  11. CLONAZEPAM [Concomitant]
     Active Substance: CLONAZEPAM
  12. GABAPENTIN [Concomitant]
     Active Substance: GABAPENTIN
  13. HYDROCODONE [Concomitant]
     Active Substance: HYDROCODONE
  14. HYDROXYZINE [Concomitant]
     Active Substance: HYDROXYZINE HYDROCHLORIDE
  15. JENTADUETO [Concomitant]
     Active Substance: LINAGLIPTIN\METFORMIN HYDROCHLORIDE
  16. LISINOPRIL [Concomitant]
     Active Substance: LISINOPRIL
  17. METFORMIN [Concomitant]
     Active Substance: METFORMIN HYDROCHLORIDE
  18. METHOCARBAMOL [Concomitant]
     Active Substance: METHOCARBAMOL
  19. MIRTAZAPINE [Concomitant]
     Active Substance: MIRTAZAPINE
  20. OMEPRAZOLE [Concomitant]
     Active Substance: OMEPRAZOLE
  21. ONDANSETRON [Concomitant]
     Active Substance: ONDANSETRON
  22. PRAZOSIN [Concomitant]
     Active Substance: PRAZOSIN
  23. VITAMIN D3 [Concomitant]
     Active Substance: CHOLECALCIFEROL
  24. ZIPRASIDONE [Concomitant]
     Active Substance: ZIPRASIDONE

REACTIONS (8)
  - Chronic kidney disease [Recovered/Resolved]
  - Renal impairment [Unknown]
  - Pain [Not Recovered/Not Resolved]
  - Emotional distress [Not Recovered/Not Resolved]
  - Anxiety [Not Recovered/Not Resolved]
  - Anhedonia [Not Recovered/Not Resolved]
  - Pollakiuria [Not Recovered/Not Resolved]
  - Depression [Not Recovered/Not Resolved]

NARRATIVE: CASE EVENT DATE: 20180501
